FAERS Safety Report 7007092-4 (Version None)
Quarter: 2010Q3

REPORT INFORMATION
  Report Type: 
  Country: None (occurrence: None)
  Receive Date: 20100922
  Receipt Date: 20100908
  Transmission Date: 20110219
  Serious: Yes (Other)
  Sender: FDA-Public Use
  Company Number: US-RANBAXY-2010RR-38220

PATIENT
  Sex: Female

DRUGS (5)
  1. CIPROFLOXACIN [Suspect]
     Indication: PRODUCT USED FOR UNKNOWN INDICATION
     Route: 065
  2. PREDNISOLONE [Suspect]
  3. LEVAQUIN [Suspect]
     Indication: PNEUMONIA
     Dosage: 500 MG, UNK
     Route: 048
     Dates: start: 20071210, end: 20071215
  4. PERCOCET [Concomitant]
  5. GABAPENTIN [Concomitant]

REACTIONS (14)
  - AMNESIA [None]
  - ANXIETY [None]
  - ASTHENIA [None]
  - BLISTER [None]
  - DEPRESSION [None]
  - DISTURBANCE IN ATTENTION [None]
  - IMMOBILE [None]
  - MUSCLE SPASMS [None]
  - MUSCLE TWITCHING [None]
  - NERVOUS SYSTEM DISORDER [None]
  - NEUROPATHY PERIPHERAL [None]
  - SHOCK [None]
  - TENDON DISORDER [None]
  - TENDONITIS [None]
